FAERS Safety Report 13647641 (Version 1)
Quarter: 2017Q2

REPORT INFORMATION
  Report Type: Spontaneous
  Country: PL (occurrence: PL)
  Receive Date: 20170613
  Receipt Date: 20170613
  Transmission Date: 20170830
  Serious: Yes (Other)
  Sender: FDA-Public Use
  Company Number: PL-TEVA-776376ISR

PATIENT
  Sex: Female

DRUGS (1)
  1. GABAPENTIN TEVA [Suspect]
     Active Substance: GABAPENTIN

REACTIONS (2)
  - Hepatomegaly [Not Recovered/Not Resolved]
  - Hepatic fibrosis [Not Recovered/Not Resolved]
